FAERS Safety Report 20677694 (Version 2)
Quarter: 2022Q3

REPORT INFORMATION
  Report Type: Report from Study
  Country: US (occurrence: US)
  Receive Date: 20220406
  Receipt Date: 20220926
  Transmission Date: 20221026
  Serious: Yes (Other)
  Sender: FDA-Public Use
  Company Number: US-HORIZON THERAPEUTICS-HZN-2022-002492

PATIENT

DRUGS (9)
  1. TEPEZZA [Suspect]
     Active Substance: TEPROTUMUMAB-TRBW
     Indication: Endocrine ophthalmopathy
     Dosage: 1ST INFUSION
     Route: 042
     Dates: start: 20220119
  2. TEPEZZA [Suspect]
     Active Substance: TEPROTUMUMAB-TRBW
     Indication: Toxic goitre
     Dosage: INFUSION
     Route: 042
     Dates: start: 20220307
  3. TEPEZZA [Suspect]
     Active Substance: TEPROTUMUMAB-TRBW
     Dosage: INFUSION: 2120 MG,  OVER 60-90 MINUTES ONCE EVERY 4 WEEKS
     Route: 042
     Dates: start: 2022
  4. EPINEPHRINE [Concomitant]
     Active Substance: EPINEPHRINE
     Dosage: UNK UNK, PRN
  5. DIPHENHYDRAMINE HYDROCHLORIDE [Concomitant]
     Active Substance: DIPHENHYDRAMINE HYDROCHLORIDE
     Dosage: UNK, PRN
  6. SOLU-MEDROL [Concomitant]
     Active Substance: METHYLPREDNISOLONE SODIUM SUCCINATE
  7. SODIUM CHLORIDE [Concomitant]
     Active Substance: SODIUM CHLORIDE
  8. PREDNISONE [Concomitant]
     Active Substance: PREDNISONE
  9. SODIUM CHLORIDE [Concomitant]
     Active Substance: SODIUM CHLORIDE

REACTIONS (4)
  - Blood glucose increased [Unknown]
  - Dehydration [Unknown]
  - Dry skin [Unknown]
  - Off label use [Unknown]

NARRATIVE: CASE EVENT DATE: 20220101
